FAERS Safety Report 15712015 (Version 1)
Quarter: 2018Q4

REPORT INFORMATION
  Report Type: Spontaneous
  Country: US (occurrence: US)
  Receive Date: 20181212
  Receipt Date: 20181212
  Transmission Date: 20190205
  Serious: Yes (Other)
  Sender: FDA-Public Use
  Company Number: US-LUPIN HEALTHCARE (UK) LIMITED-2018-08540

PATIENT
  Sex: Male
  Weight: 68.27 kg

DRUGS (3)
  1. VIMPAT [Concomitant]
     Active Substance: LACOSAMIDE
     Indication: SEIZURE
     Dosage: 200 MG, BID
     Route: 065
  2. LEVETIRACETAM TABLETS USP, 500 MG [Suspect]
     Active Substance: LEVETIRACETAM
     Indication: SEIZURE
     Dosage: 500 MG, BID
     Route: 048
     Dates: start: 2017
  3. LAMICTAL [Concomitant]
     Active Substance: LAMOTRIGINE
     Indication: SEIZURE
     Dosage: 200 MG, BID
     Route: 065

REACTIONS (4)
  - Vertigo [Recovered/Resolved]
  - Drug ineffective [Unknown]
  - Partial seizures [Recovered/Resolved]
  - Seizure [Recovered/Resolved]
